FAERS Safety Report 9491685 (Version 1)
Quarter: 2013Q3

REPORT INFORMATION
  Report Type: Spontaneous
  Country: KR (occurrence: None)
  Receive Date: 20130827
  Receipt Date: 20130827
  Transmission Date: 20140515
  Serious: Yes (Death)
  Sender: FDA-Public Use
  Company Number: 1867326

PATIENT
  Age: 10 Month
  Sex: Male

DRUGS (7)
  1. CARBOPLATIN [Suspect]
     Indication: MEDULLOBLASTOMA
     Dosage: 10 MG/KG (CYCLICAL)
  2. VINCRISTINE SULFATE [Suspect]
     Indication: MEDULLOBLASTOMA
     Dosage: .05 MG/KG (CYCLICAL)
  3. CISPLATIN [Suspect]
     Indication: MEDULLOBLASTOMA
     Dosage: 3 MG/KG (CYCLICAL)
  4. CYCLOPHOSPHAMIDE [Suspect]
     Indication: MEDULLOBLASTOMA
     Dosage: 50MG/KG (CYCLICAL)
  5. ETOPOSIDE [Suspect]
     Indication: MEDULLOBLASTOMA
     Dosage: 2.5 MG/KG (CYCLICAL)
  6. IFOSFAMIDE [Suspect]
     Indication: MEDULLOBLASTOMA
     Dosage: 50 MG/KG (CYCLICAL)
  7. THIOTEPA [Suspect]
     Indication: MEDULLOBLASTOMA

REACTIONS (3)
  - Venoocclusive liver disease [None]
  - Febrile neutropenia [None]
  - Platelet count abnormal [None]
